FAERS Safety Report 18874860 (Version 1)
Quarter: 2021Q1

REPORT INFORMATION
  Report Type: Report from Study
  Country: MX (occurrence: MX)
  Receive Date: 20210210
  Receipt Date: 20210210
  Transmission Date: 20210420
  Serious: Yes (Other)
  Sender: FDA-Public Use
  Company Number: MX-ASTRAZENECA-2020SE81403

PATIENT
  Age: 64 Year
  Sex: Female
  Weight: 48 kg

DRUGS (6)
  1. AUTRIN [Concomitant]
  2. IRON SUPPLEMENTS [Suspect]
     Active Substance: IRON
     Dosage: 150 MG 4 TABLETS DAILY
     Route: 048
     Dates: start: 20200525
  3. LOMOTIL [Concomitant]
     Active Substance: ATROPINE SULFATE\DIPHENOXYLATE HYDROCHLORIDE
  4. OMEOPRAZOLE [Concomitant]
     Active Substance: OMEPRAZOLE
  5. ACTIVAN [Concomitant]
  6. LYNPARZA [Suspect]
     Active Substance: OLAPARIB
     Dosage: 150 MG 4 TABLETS DAILY
     Route: 048
     Dates: start: 20200525

REACTIONS (5)
  - Neoplasm [Unknown]
  - Haemoglobin decreased [Unknown]
  - Abdominal discomfort [Unknown]
  - Blood creatinine increased [Unknown]
  - Nausea [Recovering/Resolving]
